FAERS Safety Report 7964913-6 (Version None)
Quarter: 2011Q4

REPORT INFORMATION
  Report Type: 
  Country: None (occurrence: None)
  Receive Date: 20111208
  Receipt Date: 20111202
  Transmission Date: 20120403
  Serious: Yes (Hospitalization, Other)
  Sender: FDA-Public Use
  Company Number: CN-BAYER-2011-115564

PATIENT
  Age: 80 Year
  Sex: Male

DRUGS (12)
  1. POTASSIUM CHLORIDE [Concomitant]
     Dosage: 1 G, BID
     Route: 048
  2. ALPROSTADIL [Concomitant]
     Dosage: 10 ?G, QD
     Route: 041
  3. AVELOX [Suspect]
     Indication: LUNG INFECTION
     Dosage: 0.4 G, QD
     Route: 041
  4. CLOPIDOGREL [Concomitant]
     Dosage: 75 MG, QD
     Route: 048
  5. FUROSEMIDE [Concomitant]
     Dosage: 20 MG, QD
     Route: 041
  6. SPIRONOLACTONE [Concomitant]
     Dosage: 20 MG, BID
     Route: 048
  7. ATORVASTATIN CALCIUM [Suspect]
     Indication: HYPERLIPIDAEMIA
     Dosage: 20 MG, QD
     Route: 048
     Dates: start: 20110315, end: 20110404
  8. ASPIRIN [Concomitant]
     Dosage: 100 MG, QD
     Route: 048
  9. METFORMIN HYDROCHLORIDE [Concomitant]
     Dosage: 0.25 G, TID
     Route: 048
  10. ISOSORBIDE MONONITRATE [Concomitant]
     Dosage: 20 MG, UNK
     Route: 040
  11. DANHONG INJECTION [Concomitant]
     Dosage: 40 ML, QD
     Route: 041
  12. POTASSIUM MAGNESIUM ASPARTATE [Concomitant]
     Dosage: 2 DF, TID
     Route: 048

REACTIONS (1)
  - RHABDOMYOLYSIS [None]
